FAERS Safety Report 17965592 (Version 1)
Quarter: 2020Q3

REPORT INFORMATION
  Report Type: Spontaneous
  Country: CA (occurrence: CA)
  Receive Date: 20200701
  Receipt Date: 20200701
  Transmission Date: 20201103
  Serious: Yes (Other)
  Sender: FDA-Public Use
  Company Number: CA-NOVAST LABORATORIES LTD.-2020NOV000274

PATIENT
  Age: 5 Year
  Sex: Male
  Weight: 16.2 kg

DRUGS (2)
  1. CLONIDINE. [Suspect]
     Active Substance: CLONIDINE
     Indication: SOMATOTROPIN STIMULATION TEST
     Dosage: 100 MICROGRAM/SQ. METER
     Route: 048
  2. L?ARGININE [Suspect]
     Active Substance: ARGININE
     Indication: SOMATOTROPIN STIMULATION TEST
     Dosage: 0.5 GRAM PER KILOGRAM, IN A 10 PERCENT SOLUTION OF NORMAL SALINE, INFUSED OVER 30 MINUTES
     Route: 042

REACTIONS (3)
  - Haematuria [Recovered/Resolved]
  - Product use in unapproved indication [Unknown]
  - Myalgia [Recovered/Resolved]
